FAERS Safety Report 9965029 (Version 1)
Quarter: 2014Q1

REPORT INFORMATION
  Report Type: Report from Study
  Country: US (occurrence: US)
  Receive Date: 20140305
  Receipt Date: 20140305
  Transmission Date: 20141002
  Serious: No
  Sender: FDA-Public Use
  Company Number: US-ABBVIE-13P-163-1128760-00

PATIENT
  Age: 29 Year
  Sex: Male

DRUGS (2)
  1. HUMIRA [Suspect]
     Indication: CROHN^S DISEASE
  2. HUMIRA [Suspect]
     Dosage: ONLY RECEIVED 40MG, 1 PEN MISFIRE

REACTIONS (5)
  - Dizziness [Recovered/Resolved]
  - Dizziness [Recovered/Resolved]
  - Device malfunction [Unknown]
  - Drug dose omission [Unknown]
  - Dizziness [Unknown]
